FAERS Safety Report 18988348 (Version 1)
Quarter: 2021Q1

REPORT INFORMATION
  Report Type: Spontaneous
  Country: BR (occurrence: BR)
  Receive Date: 20210309
  Receipt Date: 20210309
  Transmission Date: 20210420
  Serious: Yes (Hospitalization, Other)
  Sender: FDA-Public Use
  Company Number: BR-GLAXOSMITHKLINE-BR2020AMR187630

PATIENT
  Age: 47 Year
  Sex: Female

DRUGS (3)
  1. NALTREXONA (NALTREXONE) [Suspect]
     Active Substance: NALTREXONE
     Indication: PRODUCT USED FOR UNKNOWN INDICATION
     Dosage: 3.5 MG
  2. NUCALA [Suspect]
     Active Substance: MEPOLIZUMAB
     Dosage: 100 MG, Z MONTHLY
     Route: 042
     Dates: start: 20210304
  3. NUCALA [Suspect]
     Active Substance: MEPOLIZUMAB
     Indication: ASTHMA
     Dosage: 100 MG, Z MONTHLY
     Route: 042
     Dates: start: 20200618

REACTIONS (28)
  - Fatigue [Unknown]
  - Drug hypersensitivity [Unknown]
  - Sjogren^s syndrome [Unknown]
  - Oropharyngeal pain [Unknown]
  - Polymerase chain reaction positive [Unknown]
  - Crying [Unknown]
  - Cough [Recovered/Resolved]
  - Infection [Unknown]
  - Memory impairment [Unknown]
  - Productive cough [Unknown]
  - COVID-19 [Unknown]
  - Malaise [Unknown]
  - Back pain [Unknown]
  - Red blood cell sedimentation rate abnormal [Unknown]
  - Therapy interrupted [Unknown]
  - Viral infection [Unknown]
  - Dermatitis allergic [Unknown]
  - Feeling abnormal [Unknown]
  - Dry mouth [Unknown]
  - Leukocytosis [Unknown]
  - Rhinitis [Not Recovered/Not Resolved]
  - Pruritus [Unknown]
  - Nasal dryness [Unknown]
  - Epistaxis [Unknown]
  - Pyrexia [Recovered/Resolved]
  - Pneumonia [Unknown]
  - Hallucination [Unknown]
  - Nasal crusting [Unknown]

NARRATIVE: CASE EVENT DATE: 202101
